FAERS Safety Report 13123495 (Version 1)
Quarter: 2017Q1

REPORT INFORMATION
  Report Type: Report from Study
  Country: US (occurrence: US)
  Receive Date: 20170117
  Receipt Date: 20170117
  Transmission Date: 20170428
  Serious: Yes (Other)
  Sender: FDA-Public Use
  Company Number: US-GILEAD-2017-0253497

PATIENT
  Age: 75 Year
  Sex: Male

DRUGS (1)
  1. RANOLAZINE [Suspect]
     Active Substance: RANOLAZINE
     Indication: ATRIAL FIBRILLATION
     Dosage: 500 MG, UNK
     Route: 048

REACTIONS (4)
  - Neoplasm malignant [Unknown]
  - Off label use [Not Recovered/Not Resolved]
  - Myocardial infarction [Unknown]
  - Hypoacusis [Not Recovered/Not Resolved]
